FAERS Safety Report 23430792 (Version 12)
Quarter: 2024Q4

REPORT INFORMATION
  Report Type: Report from Study
  Country: CA (occurrence: CA)
  Receive Date: 20240123
  Receipt Date: 20241126
  Transmission Date: 20250115
  Serious: Yes (Hospitalization, Other)
  Sender: GLAXOSMITHKLINE
  Company Number: CA-GLAXOSMITHKLINE-CA2023090118

PATIENT

DRUGS (8)
  1. MEPOLIZUMAB [Suspect]
     Active Substance: MEPOLIZUMAB
     Indication: Asthma
     Dosage: 100 MG, Q4W
     Route: 058
     Dates: start: 20200225
  2. MEPOLIZUMAB [Suspect]
     Active Substance: MEPOLIZUMAB
     Indication: Asthma
     Dosage: 100 MG, Q4W
     Route: 058
  3. MEPOLIZUMAB [Suspect]
     Active Substance: MEPOLIZUMAB
     Indication: Asthma
     Dosage: 100 MG, Q4W
     Route: 058
  4. MEPOLIZUMAB [Suspect]
     Active Substance: MEPOLIZUMAB
     Indication: Asthma
     Dosage: 100 MG, Q4W
     Route: 058
  5. MEPOLIZUMAB [Suspect]
     Active Substance: MEPOLIZUMAB
     Indication: Asthma
     Dosage: 100 MG, Q4W
     Route: 058
  6. MEPOLIZUMAB [Suspect]
     Active Substance: MEPOLIZUMAB
     Indication: Asthma
     Dosage: 100 MG, Q4W
     Route: 058
  7. MEPOLIZUMAB [Suspect]
     Active Substance: MEPOLIZUMAB
     Indication: Asthma
     Dosage: 100 MG, Q4W
     Route: 058
  8. AMLODIPINE [Suspect]
     Active Substance: AMLODIPINE BESYLATE
     Indication: Product used for unknown indication
     Dosage: UNK

REACTIONS (27)
  - Fall [Unknown]
  - Balance disorder [Unknown]
  - Lung neoplasm malignant [Unknown]
  - Skin neoplasm excision [Unknown]
  - Skin cancer [Unknown]
  - Dyspnoea [Recovered/Resolved]
  - Malaise [Unknown]
  - COVID-19 [Unknown]
  - Cough [Recovering/Resolving]
  - Pyrexia [Unknown]
  - Constipation [Unknown]
  - Blood pressure decreased [Unknown]
  - Asthma [Unknown]
  - Wound [Recovered/Resolved]
  - Weight decreased [Unknown]
  - Fatigue [Recovering/Resolving]
  - Trunk injury [Unknown]
  - Chest pain [Unknown]
  - Muscle atrophy [Unknown]
  - Asthenia [Unknown]
  - Illness [Recovering/Resolving]
  - Localised infection [Unknown]
  - Hypertension [Unknown]
  - Pain [Recovered/Resolved]
  - Productive cough [Unknown]
  - Drug ineffective [Unknown]
  - Inappropriate schedule of product administration [Unknown]

NARRATIVE: CASE EVENT DATE: 20230801
